FAERS Safety Report 15331741 (Version 7)
Quarter: 2021Q1

REPORT INFORMATION
  Report Type: Spontaneous
  Country: JP (occurrence: JP)
  Receive Date: 20180829
  Receipt Date: 20210330
  Transmission Date: 20210419
  Serious: Yes (Death, Hospitalization, Other)
  Sender: FDA-Public Use
  Company Number: JP-BRISTOL-MYERS SQUIBB COMPANY-BMS-2018-075113

PATIENT
  Age: 84 Year
  Sex: Female
  Weight: 39 kg

DRUGS (1)
  1. OPDIVO [Suspect]
     Active Substance: NIVOLUMAB
     Indication: HEAD AND NECK CANCER
     Dosage: 117 MG, Q2WK
     Route: 041
     Dates: start: 20180629, end: 20180809

REACTIONS (4)
  - Tumour haemorrhage [Unknown]
  - Myositis [Fatal]
  - Rash [Recovered/Resolved]
  - Myasthenia gravis [Fatal]

NARRATIVE: CASE EVENT DATE: 20180706
